FAERS Safety Report 8761753 (Version 2)
Quarter: 2012Q4

REPORT INFORMATION
  Report Type: Spontaneous
  Country: GB (occurrence: None)
  Receive Date: 20120822
  Receipt Date: 20120911
  Transmission Date: 20130627
  Serious: Yes (Other)
  Sender: FDA-Public Use
  Company Number: GB-1193800

PATIENT
  Age: 85 Year
  Sex: Male

DRUGS (2)
  1. TRIESENCE [Suspect]
     Indication: MACULAR OEDEMA
     Route: 031
  2. BETADINE OPHTHALMIC [Concomitant]

REACTIONS (2)
  - Endophthalmitis [None]
  - Hypopyon [None]
